FAERS Safety Report 4876431-2 (Version None)
Quarter: 2006Q1

REPORT INFORMATION
  Report Type: 
  Country: None (occurrence: None)
  Receive Date: 20060106
  Receipt Date: 20051229
  Transmission Date: 20060701
  Serious: Yes (Hospitalization)
  Sender: FDA-Public Use
  Company Number: GXKR2005US02216

PATIENT
  Age: 85 Year
  Sex: Female

DRUGS (7)
  1. METFORMIN HCL [Suspect]
  2. ENALAPRIL MALEATE [Suspect]
  3. DIGOXIN [Suspect]
  4. FUROSEMIDE [Suspect]
  5. HYDROXYZINE HCL [Suspect]
     Indication: ANXIETY
  6. WARFARIN [Suspect]
  7. AMLODIPINE [Suspect]

REACTIONS (8)
  - CARDIAC ARREST [None]
  - CARDIAC FAILURE CONGESTIVE [None]
  - DEHYDRATION [None]
  - LACTIC ACIDOSIS [None]
  - METABOLIC ACIDOSIS [None]
  - MYOCARDIAL INFARCTION [None]
  - PERITONEAL DIALYSIS [None]
  - REFUSAL OF TREATMENT BY PATIENT [None]
